FAERS Safety Report 25691730 (Version 2)
Quarter: 2025Q3

REPORT INFORMATION
  Report Type: Spontaneous
  Country: CN (occurrence: CN)
  Receive Date: 20250818
  Receipt Date: 20250908
  Transmission Date: 20251020
  Serious: Yes (Other)
  Sender: UCB
  Company Number: CN-UCBSA-2025043353

PATIENT
  Age: 48 Year
  Sex: Female

DRUGS (1)
  1. BIMZELX [Suspect]
     Active Substance: BIMEKIZUMAB-BKZX
     Indication: Psoriatic arthropathy
     Dosage: 160 MILLIGRAM, EV 4 WEEKS
     Route: 058
     Dates: start: 20250707

REACTIONS (15)
  - Oropharyngeal pain [Not Recovered/Not Resolved]
  - Gastrooesophageal reflux disease [Not Recovered/Not Resolved]
  - Eczema [Recovering/Resolving]
  - Dysphonia [Not Recovered/Not Resolved]
  - Dental discomfort [Not Recovered/Not Resolved]
  - Rash erythematous [Recovering/Resolving]
  - Back pain [Recovering/Resolving]
  - Neck pain [Recovered/Resolved]
  - Otitis media [Not Recovered/Not Resolved]
  - Cough [Not Recovered/Not Resolved]
  - Odynophagia [Not Recovered/Not Resolved]
  - Joint effusion [Not Recovered/Not Resolved]
  - Laryngopharyngitis [Not Recovered/Not Resolved]
  - Off label use [Unknown]
  - Therapeutic product effect incomplete [Unknown]

NARRATIVE: CASE EVENT DATE: 20250701
